FAERS Safety Report 5150070-0 (Version None)
Quarter: 2006Q4

REPORT INFORMATION
  Report Type: 
  Country: None (occurrence: None)
  Receive Date: 20061113
  Receipt Date: 20061102
  Transmission Date: 20070319
  Serious: Yes (Hospitalization)
  Sender: FDA-Public Use
  Company Number: US-ABBOTT-06P-163-0348931-00

PATIENT
  Sex: Female
  Weight: 112 kg

DRUGS (10)
  1. HUMIRA [Suspect]
     Indication: CROHN'S DISEASE
     Route: 058
     Dates: start: 20050101
  2. HUMIRA [Suspect]
     Indication: RHEUMATOID ARTHRITIS
  3. PREDNISONE TAB [Suspect]
     Indication: CROHN'S DISEASE
     Dosage: TAPERING 5 MG WEEKLY UNTIL A DOSE OF 15 MG DAILY IS REACHED
     Route: 048
  4. PREDNISONE TAB [Suspect]
     Route: 048
  5. PREDNISONE TAB [Suspect]
     Route: 048
  6. PENTASA [Concomitant]
     Indication: CROHN'S DISEASE
     Route: 048
  7. PANTOPRAZOLE SODIUM [Concomitant]
     Indication: CROHN'S DISEASE
  8. FENTANYL CITRATE [Concomitant]
     Indication: PAIN
     Route: 062
  9. LEXAPRO [Concomitant]
     Indication: DRUG USE FOR UNKNOWN INDICATION
     Route: 048
  10. SULFASALAZINE [Concomitant]
     Indication: DRUG USE FOR UNKNOWN INDICATION

REACTIONS (1)
  - CROHN'S DISEASE [None]
